FAERS Safety Report 6131029-3 (Version None)
Quarter: 2009Q1

REPORT INFORMATION
  Report Type: 
  Country: None (occurrence: None)
  Receive Date: 20090323
  Receipt Date: 20090213
  Transmission Date: 20090719
  Serious: Yes (Death, Other)
  Sender: FDA-Public Use
  Company Number: 2009AP000626

PATIENT
  Age: 71 Year
  Sex: Male

DRUGS (1)
  1. PREDNISOLONE [Suspect]
     Indication: IDIOPATHIC THROMBOCYTOPENIC PURPURA
     Dosage: 90 MG;QD PO
     Route: 048

REACTIONS (12)
  - ABDOMINAL PAIN LOWER [None]
  - CANDIDIASIS [None]
  - HAEMATURIA [None]
  - HAEMOGLOBIN DECREASED [None]
  - HYPERGLYCAEMIA [None]
  - PULMONARY MASS [None]
  - RENAL CYST [None]
  - RENAL INFARCT [None]
  - RESPIRATORY FAILURE [None]
  - SYSTEMIC MYCOSIS [None]
  - THROMBOCYTOPENIA [None]
  - ZYGOMYCOSIS [None]
